FAERS Safety Report 5731337-1 (Version None)
Quarter: 2008Q2

REPORT INFORMATION
  Report Type: 
  Country: None (occurrence: None)
  Receive Date: 20080506
  Receipt Date: 20080428
  Transmission Date: 20081010
  Serious: Yes (Death, Hospitalization)
  Sender: FDA-Public Use
  Company Number: 163-21880-08010354

PATIENT
  Age: 49 Year
  Sex: Male

DRUGS (2)
  1. REVLIMID [Suspect]
     Indication: MULTIPLE MYELOMA
     Dosage: 10 MG, 1 IN 1 D, ORAL; 25-15 MG, X21 DAYS, ORAL
     Route: 048
     Dates: start: 20070126, end: 20070901
  2. REVLIMID [Suspect]
     Indication: MULTIPLE MYELOMA
     Dosage: 10 MG, 1 IN 1 D, ORAL; 25-15 MG, X21 DAYS, ORAL
     Route: 048
     Dates: start: 20071002, end: 20071201

REACTIONS (3)
  - CONSTIPATION [None]
  - DISEASE PROGRESSION [None]
  - HERPES ZOSTER DISSEMINATED [None]
